FAERS Safety Report 6354708-1 (Version None)
Quarter: 2009Q3

REPORT INFORMATION
  Report Type: 
  Country: None (occurrence: None)
  Receive Date: 20090914
  Receipt Date: 20090909
  Transmission Date: 20100115
  Serious: Yes (Other)
  Sender: FDA-Public Use
  Company Number: US-ELI_LILLY_AND_COMPANY-US200907005379

PATIENT
  Sex: Female

DRUGS (4)
  1. HUMULIN N [Suspect]
     Dosage: 18 U, EACH MORNING
     Dates: start: 19950101
  2. HUMULIN N [Suspect]
     Dosage: 22 U, EACH EVENING
     Dates: start: 19950101
  3. HUMULIN N [Suspect]
     Dosage: 18 U, EACH MORNING
     Dates: start: 19950101
  4. HUMULIN N [Suspect]
     Dosage: 22 U, EACH EVENING
     Dates: start: 19950101

REACTIONS (7)
  - DEPRESSED LEVEL OF CONSCIOUSNESS [None]
  - FALL [None]
  - FEELING ABNORMAL [None]
  - FOOT FRACTURE [None]
  - UPPER LIMB FRACTURE [None]
  - VISUAL ACUITY REDUCED [None]
  - WRONG TECHNIQUE IN DRUG USAGE PROCESS [None]
